FAERS Safety Report 7973394-8 (Version None)
Quarter: 2011Q4

REPORT INFORMATION
  Report Type: 
  Country: None (occurrence: None)
  Receive Date: 20111213
  Receipt Date: 20111205
  Transmission Date: 20120403
  Serious: Yes (Death, Other)
  Sender: FDA-Public Use
  Company Number: PT-ASTELLAS-2011EU009117

PATIENT
  Age: 67 Year
  Sex: Female

DRUGS (4)
  1. TACROLIMUS [Suspect]
     Indication: HEART TRANSPLANT
     Dosage: 4 MG, UNKNOWN/D
     Route: 065
  2. PREDNISONE [Concomitant]
     Indication: HEART TRANSPLANT
     Dosage: 7.5 MG, UNKNOWN/D
     Route: 065
  3. TACROLIMUS [Suspect]
     Dosage: 1.5 MG, UNKNOWN/D
     Route: 065
  4. SIROLIMUS [Concomitant]
     Indication: HEART TRANSPLANT
     Dosage: 1 MG, UNKNOWN/D
     Route: 065

REACTIONS (2)
  - BRONCHOPULMONARY ASPERGILLOSIS [None]
  - ASPERGILLOSIS [None]
